FAERS Safety Report 4989003-6 (Version None)
Quarter: 2006Q1

REPORT INFORMATION
  Report Type: 
  Country: None (occurrence: None)
  Receive Date: 20060314
  Receipt Date: 20051010
  Transmission Date: 20060701
  Serious: Yes (Other)
  Sender: FDA-Public Use
  Company Number: 200513292BCC

PATIENT
  Age: 50 Year
  Sex: Male
  Weight: 113.3993 kg

DRUGS (1)
  1. ALEVE [Suspect]
     Indication: ARTHRALGIA
     Dosage: 440/ MG, QD, ORAL
     Route: 048
     Dates: start: 20050101

REACTIONS (3)
  - ARTHRALGIA [None]
  - FLATULENCE [None]
  - HAEMATOCHEZIA [None]
